FAERS Safety Report 5939476-7 (Version None)
Quarter: 2008Q4

REPORT INFORMATION
  Report Type: 
  Country: None (occurrence: None)
  Receive Date: 20081103
  Receipt Date: 20081021
  Transmission Date: 20090506
  Serious: Yes (Death)
  Sender: FDA-Public Use
  Company Number: FR-GENENTECH-270588

PATIENT
  Sex: Male

DRUGS (9)
  1. MABTHERA [Suspect]
     Indication: LYMPHOMA
     Dosage: 375 MG/M2, UNK
     Route: 042
     Dates: start: 20080430, end: 20080430
  2. CARDENSIEL [Concomitant]
     Indication: DRUG USE FOR UNKNOWN INDICATION
  3. CAPTOPRIL [Concomitant]
     Indication: DRUG USE FOR UNKNOWN INDICATION
  4. LASIX [Concomitant]
     Indication: DRUG USE FOR UNKNOWN INDICATION
  5. RASBURICASE [Concomitant]
     Indication: DRUG USE FOR UNKNOWN INDICATION
  6. SKENAN [Concomitant]
     Indication: DRUG USE FOR UNKNOWN INDICATION
  7. MORPHINE [Concomitant]
     Indication: DRUG USE FOR UNKNOWN INDICATION
  8. POLARAMINE [Concomitant]
     Indication: PREMEDICATION
     Dosage: 5 MG, UNK
     Route: 042
  9. SOLU-MEDROL [Concomitant]
     Indication: PREMEDICATION
     Dosage: 1 MG/KG, UNK

REACTIONS (3)
  - CARDIO-RESPIRATORY ARREST [None]
  - CONVULSION [None]
  - HYPOTENSION [None]
